FAERS Safety Report 9108387 (Version 1)
Quarter: 2013Q1

REPORT INFORMATION
  Report Type: Spontaneous
  Country: FR (occurrence: FR)
  Receive Date: 20130222
  Receipt Date: 20130222
  Transmission Date: 20140127
  Serious: Yes (Other)
  Sender: FDA-Public Use
  Company Number: FR-ROXANE LABORATORIES, INC.-2013-RO-00268RO

PATIENT
  Age: 15 Year
  Sex: Male

DRUGS (4)
  1. LEVETIRACETAM [Suspect]
     Indication: CONVULSION
     Route: 048
  2. METHOTREXATE [Suspect]
     Indication: B PRECURSOR TYPE ACUTE LEUKAEMIA
     Route: 037
  3. ONDANSETRON [Concomitant]
     Indication: VOMITING
  4. METOPIMAZINE [Concomitant]
     Indication: VOMITING

REACTIONS (1)
  - Toxicity to various agents [Recovered/Resolved]
